FAERS Safety Report 15863521 (Version 1)
Quarter: 2019Q1

REPORT INFORMATION
  Report Type: Spontaneous
  Country: DE (occurrence: DE)
  Receive Date: 20190124
  Receipt Date: 20190124
  Transmission Date: 20190417
  Serious: Yes (Other)
  Sender: FDA-Public Use
  Company Number: DE-ASTRAZENECA-2019SE12085

PATIENT
  Age: 69 Year
  Sex: Female

DRUGS (2)
  1. LYNPARZA [Suspect]
     Active Substance: OLAPARIB
     Indication: NEOPLASM MALIGNANT
     Dosage: 50.0MG UNKNOWN
     Route: 048
  2. LYNPARZA [Suspect]
     Active Substance: OLAPARIB
     Indication: NEOPLASM MALIGNANT
     Dosage: 100.0MG UNKNOWN
     Route: 048

REACTIONS (5)
  - Nausea [Unknown]
  - Drug tolerance decreased [Unknown]
  - Large intestinal stenosis [Unknown]
  - Intestinal metastasis [Unknown]
  - Functional gastrointestinal disorder [Unknown]
